APPROVED DRUG PRODUCT: DESONIDE
Active Ingredient: DESONIDE
Strength: 0.05%
Dosage Form/Route: OINTMENT;TOPICAL
Application: A075751 | Product #001 | TE Code: AB
Applicant: FOUGERA PHARMACEUTICALS INC
Approved: Mar 12, 2001 | RLD: No | RS: No | Type: RX